FAERS Safety Report 14745839 (Version 1)
Quarter: 2018Q2

REPORT INFORMATION
  Report Type: Spontaneous
  Country: ZA (occurrence: ZA)
  Receive Date: 20180411
  Receipt Date: 20180411
  Transmission Date: 20180711
  Serious: Yes (Hospitalization)
  Sender: FDA-Public Use
  Company Number: PHHY2018ZA060710

PATIENT
  Age: 68 Year
  Sex: Female

DRUGS (2)
  1. CATAFLAM [Suspect]
     Active Substance: DICLOFENAC POTASSIUM
     Indication: PAIN
     Route: 065
  2. AMLOC [Concomitant]
     Indication: PRODUCT USED FOR UNKNOWN INDICATION
     Route: 065

REACTIONS (4)
  - Drug ineffective [Unknown]
  - Sacroiliitis [Unknown]
  - Hypokinesia [Unknown]
  - Spinal pain [Unknown]
